FAERS Safety Report 7087746-4 (Version None)
Quarter: 2010Q4

REPORT INFORMATION
  Report Type: 
  Country: None (occurrence: None)
  Receive Date: 20101108
  Receipt Date: 20101027
  Transmission Date: 20110411
  Serious: No
  Sender: FDA-Public Use
  Company Number: 2009BI024101

PATIENT
  Sex: Female

DRUGS (2)
  1. TYSABRI [Suspect]
     Indication: MULTIPLE SCLEROSIS
     Route: 042
     Dates: start: 20080408, end: 20080612
  2. TYSABRI [Suspect]
     Route: 042
     Dates: start: 20090724

REACTIONS (5)
  - DIABETES MELLITUS [None]
  - FATIGUE [None]
  - HEMIPARESIS [None]
  - INCONTINENCE [None]
  - MEMORY IMPAIRMENT [None]
